FAERS Safety Report 5741355-5 (Version None)
Quarter: 2008Q2

REPORT INFORMATION
  Report Type: 
  Country: None (occurrence: None)
  Receive Date: 20080513
  Receipt Date: 20080508
  Transmission Date: 20081010
  Serious: Yes (Other)
  Sender: FDA-Public Use
  Company Number: 2008-02922

PATIENT
  Age: 15 Month
  Sex: Male

DRUGS (5)
  1. FIORICET [Suspect]
     Indication: PYREXIA
     Dosage: 240 MG, QID (73MG/KG/D)
  2. VALPROIC ACID [Suspect]
     Indication: MYOCLONIC EPILEPSY
     Dosage: 31 MG/KG, DAILY
  3. TOPIRAMATE [Suspect]
     Indication: MYOCLONIC EPILEPSY
     Dosage: 6 MG/KG, DAILY : 3.9 MG/KG, DAILY
  4. CLOBAZAM (CLOBAZAM) [Concomitant]
  5. L-CARNITINE [Concomitant]

REACTIONS (2)
  - HEPATOTOXICITY [None]
  - INHIBITORY DRUG INTERACTION [None]
